FAERS Safety Report 7991933-8 (Version None)
Quarter: 2011Q4

REPORT INFORMATION
  Report Type: 
  Country: None (occurrence: None)
  Receive Date: 20111219
  Receipt Date: 20101115
  Transmission Date: 20120403
  Serious: No
  Sender: FDA-Public Use
  Company Number: US-ASTRAZENECA-2010SE54529

PATIENT
  Age: 64 Year
  Sex: Female
  Weight: 51.3 kg

DRUGS (1)
  1. CRESTOR [Suspect]
     Indication: HYPERCHOLESTEROLAEMIA
     Route: 048

REACTIONS (3)
  - NERVOUSNESS [None]
  - HEART RATE ABNORMAL [None]
  - INSOMNIA [None]
